FAERS Safety Report 5482463-6 (Version None)
Quarter: 2007Q4

REPORT INFORMATION
  Report Type: 
  Country: None (occurrence: None)
  Receive Date: 20071011
  Receipt Date: 20071004
  Transmission Date: 20080405
  Serious: Yes (Hospitalization)
  Sender: FDA-Public Use
  Company Number: US-ASTRAZENECA-2007UW23175

PATIENT
  Age: 81 Year
  Sex: Female

DRUGS (4)
  1. ARIMIDEX [Suspect]
     Indication: BREAST CANCER
  2. LIPITOR [Concomitant]
  3. METOPROLOL TARTRATE [Concomitant]
  4. NEO-SYNEPHRINE [Concomitant]
     Dosage: DRIP

REACTIONS (2)
  - LOCALISED INFECTION [None]
  - SEPSIS [None]
